FAERS Safety Report 8585317-1 (Version None)
Quarter: 2012Q3

REPORT INFORMATION
  Report Type: 
  Country: None (occurrence: None)
  Receive Date: 20120810
  Receipt Date: 20120725
  Transmission Date: 20120928
  Serious: Yes (Hospitalization)
  Sender: FDA-Public Use
  Company Number: JP-AMGEN-JPNCT2011055004

PATIENT
  Age: 36 Year
  Sex: Female
  Weight: 55.5 kg

DRUGS (17)
  1. DENOSUMAB [Suspect]
     Indication: BREAST CANCER
     Dosage: UNK UNK, Q4WK
     Route: 058
     Dates: start: 20110901
  2. SOLDEM 3AG [Concomitant]
     Dosage: 1000 ML, UNK
     Route: 042
     Dates: start: 20110923, end: 20110925
  3. POVIDONE IODINE [Concomitant]
     Route: 050
     Dates: start: 20110901
  4. EPIRUBICIN HYDROCHLORIDE [Concomitant]
     Indication: BREAST CANCER
     Dosage: 153 MG, Q3WK
     Route: 042
     Dates: start: 20110901
  5. FLUOROURACIL [Concomitant]
     Indication: BREAST CANCER
     Dosage: 765 MG, Q3WK
     Route: 042
     Dates: start: 20110901
  6. DEXAMETHASONE SODIUM PHOSPHATE [Concomitant]
     Indication: PROPHYLAXIS OF NAUSEA AND VOMITING
     Dosage: 9.9 MG, Q3WK
     Route: 042
     Dates: start: 20110901, end: 20111110
  7. SOLULACT D [Concomitant]
     Dosage: 500 ML, UNK
     Route: 042
     Dates: start: 20110922, end: 20111020
  8. VITAMIN D [Concomitant]
     Dosage: 400 IU, UNK
     Route: 048
     Dates: start: 20110901, end: 20111020
  9. CALCICHEW D3 [Concomitant]
     Indication: MINERAL SUPPLEMENTATION
     Dosage: UNK UNK, QD
     Route: 048
     Dates: start: 20110901
  10. DECADRON PHOSPHATE [Concomitant]
     Dosage: 1 MG, UNK
     Route: 048
     Dates: start: 20110901, end: 20111024
  11. GRANISETRON [Concomitant]
     Indication: PROPHYLAXIS OF NAUSEA AND VOMITING
     Dosage: 1 MG, Q3WK
     Route: 042
     Dates: start: 20110901, end: 20111110
  12. SELBEX [Concomitant]
     Dosage: 0.5 G, UNK
     Route: 048
     Dates: start: 20110901, end: 20111026
  13. CALCIUM [Concomitant]
     Dosage: 610 MG, UNK
     Route: 048
     Dates: start: 20110901, end: 20111020
  14. HYDROXYZINE HYDROCHLORIDE [Concomitant]
     Dosage: UNK
     Dates: start: 20110922
  15. MOTILIUM [Concomitant]
     Dosage: UNK MG, UNK
     Dates: start: 20110901
  16. EMEND [Concomitant]
     Dosage: UNK
     Route: 048
     Dates: start: 20110901, end: 20111020
  17. PRIMPERAN TAB [Concomitant]
     Dosage: 10 MG, UNK
     Route: 042
     Dates: start: 20110922, end: 20111020

REACTIONS (2)
  - VOMITING [None]
  - NAUSEA [None]
